FAERS Safety Report 18243219 (Version 1)
Quarter: 2020Q3

REPORT INFORMATION
  Report Type: Report from Study
  Country: US (occurrence: US)
  Receive Date: 20200908
  Receipt Date: 20200908
  Transmission Date: 20201103
  Serious: Yes (Other)
  Sender: FDA-Public Use
  Company Number: US-JNJFOC-20200904561

PATIENT
  Age: 63 Year
  Sex: Male

DRUGS (5)
  1. SPORANOX [Suspect]
     Active Substance: ITRACONAZOLE
     Route: 048
  2. SPORANOX [Suspect]
     Active Substance: ITRACONAZOLE
     Route: 048
  3. SPORANOX [Suspect]
     Active Substance: ITRACONAZOLE
     Route: 048
  4. SPORANOX [Suspect]
     Active Substance: ITRACONAZOLE
     Route: 048
  5. SPORANOX [Suspect]
     Active Substance: ITRACONAZOLE
     Indication: BLASTOMYCOSIS
     Route: 048

REACTIONS (2)
  - Nocturia [Recovered/Resolved]
  - Oedema [Recovering/Resolving]
